FAERS Safety Report 18270472 (Version 2)
Quarter: 2020Q3

REPORT INFORMATION
  Report Type: Spontaneous
  Country: US (occurrence: US)
  Receive Date: 20200915
  Receipt Date: 20200929
  Transmission Date: 20201103
  Serious: Yes (Other)
  Sender: FDA-Public Use
  Company Number: US-TEVA-2020-US-1827429

PATIENT
  Age: 5 Month
  Sex: Male

DRUGS (2)
  1. VIGABATRIN. [Concomitant]
     Active Substance: VIGABATRIN
     Indication: EPILEPSY
     Route: 065
  2. PREDNISOLONE. [Suspect]
     Active Substance: PREDNISOLONE
     Indication: EPILEPSY
     Dosage: 57 MILLIGRAM DAILY; (8 MG/KG/DAY)
     Route: 048

REACTIONS (1)
  - Sinus bradycardia [Recovered/Resolved]
